FAERS Safety Report 11246895 (Version 1)
Quarter: 2015Q3

REPORT INFORMATION
  Report Type: Spontaneous
  Country: DE (occurrence: DE)
  Receive Date: 20150708
  Receipt Date: 20150708
  Transmission Date: 20151125
  Serious: Yes (Congenital Anomaly, Other)
  Sender: FDA-Public Use
  Company Number: DE-BIOGENIDEC-2015BI092624

PATIENT
  Age: 0 Day
  Sex: Male
  Weight: 3 kg

DRUGS (1)
  1. TECFIDERA [Suspect]
     Active Substance: DIMETHYL FUMARATE
     Indication: MATERNAL EXPOSURE TIMING UNSPECIFIED
     Route: 064
     Dates: start: 20140712, end: 201409

REACTIONS (3)
  - Foetal exposure during pregnancy [Recovered/Resolved]
  - Cardiac perforation [Recovered/Resolved]
  - Cardiac murmur [Recovered/Resolved]

NARRATIVE: CASE EVENT DATE: 20150601
